FAERS Safety Report 5026829-7 (Version None)
Quarter: 2006Q2

REPORT INFORMATION
  Report Type: 
  Country: None (occurrence: None)
  Receive Date: 20060504
  Receipt Date: 20060207
  Transmission Date: 20061013
  Serious: No
  Sender: FDA-Public Use
  Company Number: 200610730BWH

PATIENT
  Age: 68 Year
  Sex: Female

DRUGS (3)
  1. NEXAVAR [Suspect]
     Indication: METASTASES TO LIVER
     Dosage: 400 MG,BID,ORAL
     Route: 048
     Dates: start: 20060204, end: 20060216
  2. NEXAVAR [Suspect]
     Indication: RENAL CELL CARCINOMA STAGE UNSPECIFIED
     Dosage: 400 MG,BID,ORAL
     Route: 048
     Dates: start: 20060204, end: 20060216
  3. NORTRIPTYLINE HCL [Concomitant]

REACTIONS (13)
  - ANOREXIA [None]
  - ASTHENIA [None]
  - BLISTER [None]
  - BURNING SENSATION [None]
  - CONSTIPATION [None]
  - DYSPHONIA [None]
  - GLOSSODYNIA [None]
  - NAUSEA [None]
  - ORAL PAIN [None]
  - PARAESTHESIA [None]
  - PRURITUS [None]
  - PYREXIA [None]
  - RASH GENERALISED [None]
